FAERS Safety Report 6141623-1 (Version None)
Quarter: 2009Q2

REPORT INFORMATION
  Report Type: 
  Country: None (occurrence: None)
  Receive Date: 20090402
  Receipt Date: 20090327
  Transmission Date: 20091009
  Serious: Yes (Hospitalization)
  Sender: FDA-Public Use
  Company Number: B0546094A

PATIENT
  Age: 87 Year
  Sex: Female

DRUGS (1)
  1. PAROXETINE HCL [Suspect]
     Indication: PANIC ATTACK
     Dosage: 10MG PER DAY
     Route: 048
     Dates: start: 20060818, end: 20060821

REACTIONS (6)
  - ACTIVATION SYNDROME [None]
  - AKATHISIA [None]
  - ILL-DEFINED DISORDER [None]
  - INSOMNIA [None]
  - MANIA [None]
  - MOOD ALTERED [None]
